FAERS Safety Report 8427630-4 (Version None)
Quarter: 2012Q2

REPORT INFORMATION
  Report Type: 
  Country: None (occurrence: None)
  Receive Date: 20120611
  Receipt Date: 20120529
  Transmission Date: 20120825
  Serious: Yes (Other)
  Sender: FDA-Public Use
  Company Number: IL-JNJFOC-20120603938

PATIENT

DRUGS (3)
  1. PENICILLIN [Concomitant]
     Indication: FEBRILE NEUTROPENIA
     Route: 065
  2. CLADRIBINE [Suspect]
     Indication: HAIRY CELL LEUKAEMIA
     Dosage: 0.1MG/KG FOR 5 DAYS (2 HR INFUSION) OR 7 DAYS (CONTINUOUS INFUSION)
     Route: 042
  3. GRANULOCYTE COLONY STIMULATING FACTOR [Suspect]
     Indication: PRODUCT USED FOR UNKNOWN INDICATION
     Route: 065

REACTIONS (3)
  - LYMPHOPENIA [None]
  - ALPHA HAEMOLYTIC STREPTOCOCCAL INFECTION [None]
  - DERMATITIS [None]
